FAERS Safety Report 22012770 (Version 1)
Quarter: 2023Q1

REPORT INFORMATION
  Report Type: Report from Study
  Country: US (occurrence: US)
  Receive Date: 20230220
  Receipt Date: 20230220
  Transmission Date: 20230418
  Serious: Yes (Death)
  Sender: FDA-Public Use
  Company Number: US-BAYER-2023A019931

PATIENT
  Age: 74 Year
  Sex: Female
  Weight: 40.816 kg

DRUGS (3)
  1. ADEMPAS [Suspect]
     Active Substance: RIOCIGUAT
     Indication: Pulmonary arterial hypertension
     Dosage: UNK
     Dates: start: 20210629
  2. ADEMPAS [Suspect]
     Active Substance: RIOCIGUAT
     Indication: Pulmonary arterial hypertension
     Dosage: 1.5 MG, TID
     Route: 048
  3. UPTRAVI [Concomitant]
     Active Substance: SELEXIPAG

REACTIONS (1)
  - Death [Fatal]

NARRATIVE: CASE EVENT DATE: 20230211
